FAERS Safety Report 15730740 (Version 2)
Quarter: 2020Q3

REPORT INFORMATION
  Report Type: Report from Study
  Country: US (occurrence: US)
  Receive Date: 20181217
  Receipt Date: 20200924
  Transmission Date: 20201102
  Serious: No
  Sender: FDA-Public Use
  Company Number: US-SA-2018SA340738

PATIENT

DRUGS (3)
  1. TERIFLUNOMIDE. [Suspect]
     Active Substance: TERIFLUNOMIDE
     Dosage: 14 MG, QOD
     Route: 048
     Dates: start: 20181107
  2. TERIFLUNOMIDE. [Suspect]
     Active Substance: TERIFLUNOMIDE
     Indication: MULTIPLE SCLEROSIS
     Dosage: 14 MG, QOD (EVERY OTHER DAY)
     Route: 048
     Dates: start: 201509
  3. TERIFLUNOMIDE. [Suspect]
     Active Substance: TERIFLUNOMIDE
     Dosage: 14 MG, QD
     Route: 048
     Dates: start: 20200907

REACTIONS (6)
  - Product use issue [Unknown]
  - Nausea [Not Recovered/Not Resolved]
  - Faeces soft [Not Recovered/Not Resolved]
  - Alopecia [Unknown]
  - Hair disorder [Not Recovered/Not Resolved]
  - Off label use [Unknown]

NARRATIVE: CASE EVENT DATE: 2015
